FAERS Safety Report 7964546-1 (Version None)
Quarter: 2011Q4

REPORT INFORMATION
  Report Type: 
  Country: None (occurrence: None)
  Receive Date: 20111121
  Receipt Date: 20110901
  Transmission Date: 20120403
  Serious: No
  Sender: FDA-Public Use
  Company Number: 1000023405

PATIENT
  Age: 54 Year
  Sex: Male

DRUGS (6)
  1. DILTIAZEM HYDROCHLORIDE [Concomitant]
  2. VIIBRYD [Suspect]
     Indication: DEPRESSION
     Dosage: 10 MG, (10 MG, 1 IN 1 D), ORAL; 20 MG (20 MG,1 IN 1 D), ORAL; 40 (40 MG, 1 IN 1 D), ORAL
     Route: 048
     Dates: start: 20110816, end: 20110822
  3. VIIBRYD [Suspect]
     Indication: DEPRESSION
     Dosage: 10 MG, (10 MG, 1 IN 1 D), ORAL; 20 MG (20 MG,1 IN 1 D), ORAL; 40 (40 MG, 1 IN 1 D), ORAL
     Route: 048
     Dates: start: 20110809, end: 20110815
  4. VIIBRYD [Suspect]
     Indication: DEPRESSION
     Dosage: 10 MG, (10 MG, 1 IN 1 D), ORAL; 20 MG (20 MG,1 IN 1 D), ORAL; 40 (40 MG, 1 IN 1 D), ORAL
     Route: 048
     Dates: start: 20110823
  5. MULTI-VITAMINS [Concomitant]
  6. XANAX [Concomitant]

REACTIONS (5)
  - NAUSEA [None]
  - DIARRHOEA [None]
  - FEELING JITTERY [None]
  - ASTHENIA [None]
  - LETHARGY [None]
